FAERS Safety Report 7110145-3 (Version None)
Quarter: 2010Q4

REPORT INFORMATION
  Report Type: 
  Country: None (occurrence: None)
  Receive Date: 20101116
  Receipt Date: 20101116
  Transmission Date: 20110411
  Serious: Yes (Life-Threatening)
  Sender: FDA-Public Use
  Company Number: None

PATIENT
  Age: 62 Year
  Sex: Male
  Weight: 65 kg

DRUGS (1)
  1. LISINOPRIL [Suspect]
     Indication: CORONARY ARTERY DISEASE
     Dosage: 10 MG DAILY PO
     Route: 048
     Dates: start: 20101015, end: 20101111

REACTIONS (1)
  - ANGIOEDEMA [None]
